FAERS Safety Report 17051110 (Version 2)
Quarter: 2020Q1

REPORT INFORMATION
  Report Type: Report from Study
  Country: US (occurrence: US)
  Receive Date: 20191120
  Receipt Date: 20200304
  Transmission Date: 20200409
  Serious: Yes (Other)
  Sender: FDA-Public Use
  Company Number: NVSC2019US041255

PATIENT
  Sex: Female
  Weight: 86.18 kg

DRUGS (1)
  1. ILARIS [Suspect]
     Active Substance: CANAKINUMAB
     Indication: BEHCET^S SYNDROME
     Dosage: 3 ML, EVERY 28 DAYS
     Route: 058

REACTIONS (2)
  - Product use in unapproved indication [Unknown]
  - Behcet^s syndrome [Unknown]
